FAERS Safety Report 9870303 (Version 1)
Quarter: 2014Q1

REPORT INFORMATION
  Report Type: Spontaneous
  Country: US (occurrence: None)
  Receive Date: 20140203
  Receipt Date: 20140203
  Transmission Date: 20141002
  Serious: Yes (Death)
  Sender: FDA-Public Use
  Company Number: VAL_02922_2014

PATIENT
  Age: 39 Year
  Sex: Female

DRUGS (7)
  1. CARBAMAZEPINE [Suspect]
     Dosage: DF
  2. METHAMPHETAMINE [Suspect]
     Dosage: DF
  3. MORPHINE [Suspect]
     Dosage: DF
  4. OXYCODONE [Suspect]
     Dosage: DF
  5. ALPRAZOLAM [Suspect]
  6. FLUOXETINE [Suspect]
  7. DIAZEPAM [Suspect]
     Dosage: DF

REACTIONS (2)
  - Poisoning [None]
  - Drug abuse [None]
